FAERS Safety Report 8303582-2 (Version None)
Quarter: 2012Q2

REPORT INFORMATION
  Report Type: 
  Country: None (occurrence: None)
  Receive Date: 20120423
  Receipt Date: 20120416
  Transmission Date: 20120825
  Serious: No
  Sender: FDA-Public Use
  Company Number: US-PFIZER INC-2012095176

PATIENT
  Sex: Female

DRUGS (3)
  1. LEVOTHYROXINE SODIUM [Suspect]
     Dosage: 0.125 MG, UNK
  2. CLONAZEPAM [Suspect]
     Dosage: 0.5 MG, UNK
  3. LITHIUM CARBONATE [Suspect]
     Dosage: 300, 3 OF QHS

REACTIONS (1)
  - DRUG HYPERSENSITIVITY [None]
